FAERS Safety Report 13533557 (Version 1)
Quarter: 2017Q2

REPORT INFORMATION
  Report Type: Spontaneous
  Country: TR (occurrence: TR)
  Receive Date: 20170510
  Receipt Date: 20170510
  Transmission Date: 20170830
  Serious: Yes (Other)
  Sender: FDA-Public Use
  Company Number: ALCN2017TR003186

PATIENT
  Age: 65 Year
  Sex: Male

DRUGS (1)
  1. VIGAMOX [Suspect]
     Active Substance: MOXIFLOXACIN HYDROCHLORIDE
     Indication: CONJUNCTIVITIS
     Dosage: UNK, TID
     Route: 047

REACTIONS (4)
  - Ocular icterus [Unknown]
  - Hepatic enzyme increased [Unknown]
  - Yellow skin [Unknown]
  - Chromaturia [Unknown]
